FAERS Safety Report 21838328 (Version 1)
Quarter: 2023Q1

REPORT INFORMATION
  Report Type: Spontaneous
  Country: CN (occurrence: CN)
  Receive Date: 20230109
  Receipt Date: 20230109
  Transmission Date: 20230418
  Serious: Yes (Hospitalization, Other)
  Sender: FDA-Public Use
  Company Number: CN-009507513-2301CHN001278

PATIENT
  Age: 34 Year
  Sex: Male

DRUGS (3)
  1. CILASTATIN SODIUM\IMIPENEM [Suspect]
     Active Substance: CILASTATIN SODIUM\IMIPENEM
     Indication: Anti-infective therapy
     Dosage: 0.5 G, BID
     Route: 041
     Dates: start: 20221226, end: 20221231
  2. SODIUM CHLORIDE [Suspect]
     Active Substance: SODIUM CHLORIDE
     Indication: Medication dilution
     Dosage: 100 ML, BID
     Route: 041
     Dates: start: 20221226, end: 20221231
  3. DOXOFYLLINE [Concomitant]
     Active Substance: DOXOFYLLINE
     Indication: Muscle spasms
     Dosage: 0.2 G, BID
     Route: 048
     Dates: start: 20221226, end: 20230101

REACTIONS (1)
  - Epilepsy [Recovering/Resolving]

NARRATIVE: CASE EVENT DATE: 20221231
